FAERS Safety Report 8463458-7 (Version None)
Quarter: 2012Q2

REPORT INFORMATION
  Report Type: 
  Country: None (occurrence: None)
  Receive Date: 20120625
  Receipt Date: 20120620
  Transmission Date: 20120825
  Serious: Yes (Other)
  Sender: FDA-Public Use
  Company Number: US-PFIZER INC-2012136500

PATIENT
  Sex: Male

DRUGS (1)
  1. XARELTO [Suspect]
     Indication: ATRIAL FIBRILLATION
     Dosage: 20 MG, 1X/DAY
     Route: 048
     Dates: start: 20120323, end: 20120511

REACTIONS (11)
  - DYSPNOEA [None]
  - OEDEMA PERIPHERAL [None]
  - ERYTHEMA [None]
  - BURNING SENSATION [None]
  - VISION BLURRED [None]
  - BLOOD BLISTER [None]
  - DRY MOUTH [None]
  - HEART RATE DECREASED [None]
  - MOBILITY DECREASED [None]
  - HAEMORRHAGE [None]
  - JOINT SWELLING [None]
